FAERS Safety Report 6129550-7 (Version None)
Quarter: 2009Q1

REPORT INFORMATION
  Report Type: 
  Country: None (occurrence: None)
  Receive Date: 20090324
  Receipt Date: 20090311
  Transmission Date: 20090719
  Serious: Yes (Death)
  Sender: FDA-Public Use
  Company Number: JP-PFIZER INC-2009184699

PATIENT

DRUGS (11)
  1. SILDENAFIL CITRATE [Suspect]
     Indication: PULMONARY HYPERTENSION
     Dosage: 2.5 MG, 4X/DAY
     Route: 048
     Dates: start: 20070525
  2. DORNER [Concomitant]
     Dosage: UNK
     Route: 048
     Dates: start: 20070706
  3. TRACLEER [Concomitant]
     Dosage: UNK
     Route: 048
     Dates: start: 20070517
  4. BISOLVON [Concomitant]
     Route: 048
  5. AMBROXOL [Concomitant]
     Route: 048
  6. THEO-DUR [Concomitant]
     Route: 048
  7. HOKUNALIN [Concomitant]
     Route: 048
  8. ERYTHROCIN [Concomitant]
     Route: 048
  9. FUROSEMIDE [Concomitant]
     Route: 048
  10. ALDACTONE [Concomitant]
     Route: 048
  11. CORTRIL [Concomitant]
     Route: 048

REACTIONS (1)
  - DEATH [None]
